FAERS Safety Report 14360831 (Version 1)
Quarter: 2018Q1

REPORT INFORMATION
  Report Type: Report from Study
  Country: US (occurrence: US)
  Receive Date: 20180107
  Receipt Date: 20180107
  Transmission Date: 20180509
  Serious: Yes (Other)
  Sender: FDA-Public Use
  Company Number: US-TEVA-2018-US-843046

PATIENT
  Sex: Male

DRUGS (1)
  1. CINQAIR [Suspect]
     Active Substance: RESLIZUMAB
     Route: 042
     Dates: start: 20170407

REACTIONS (4)
  - Cough [Not Recovered/Not Resolved]
  - Upper respiratory tract congestion [Unknown]
  - Respiratory tract infection [Not Recovered/Not Resolved]
  - Dysphonia [Unknown]
